FAERS Safety Report 15617028 (Version 1)
Quarter: 2018Q4

REPORT INFORMATION
  Report Type: Spontaneous
  Country: US (occurrence: US)
  Receive Date: 20181114
  Receipt Date: 20181114
  Transmission Date: 20190205
  Serious: No
  Sender: FDA-Public Use
  Company Number: US-009507513-1810USA009007

PATIENT
  Age: 32 Year
  Sex: Female

DRUGS (1)
  1. PREGNYL [Suspect]
     Active Substance: CHORIOGONADOTROPIN ALFA
     Indication: ARTIFICIAL INSEMINATION
     Dosage: 10000 IU, DURING 8 CYCLES

REACTIONS (2)
  - Maternal exposure before pregnancy [Unknown]
  - Therapeutic response unexpected [Unknown]
